FAERS Safety Report 19385442 (Version 1)
Quarter: 2021Q2

REPORT INFORMATION
  Report Type: Spontaneous
  Country: US (occurrence: US)
  Receive Date: 20210608
  Receipt Date: 20210608
  Transmission Date: 20210717
  Serious: No
  Sender: FDA-Public Use
  Company Number: US-TEVA-2021-US-1914509

PATIENT
  Age: 71 Year

DRUGS (1)
  1. LIDOCAINE ACTAVIS [Suspect]
     Active Substance: LIDOCAINE
     Route: 065

REACTIONS (3)
  - Therapeutic product effect decreased [Unknown]
  - Product quality issue [Unknown]
  - Product adhesion issue [Unknown]
